FAERS Safety Report 10269013 (Version 3)
Quarter: 2015Q4

REPORT INFORMATION
  Report Type: Spontaneous
  Country: BE (occurrence: BE)
  Receive Date: 20140630
  Receipt Date: 20151207
  Transmission Date: 20160304
  Serious: Yes (Death, Other)
  Sender: FDA-Public Use
  Company Number: BE-GILEAD-2014-0107074

PATIENT
  Age: 67 Year
  Sex: Male

DRUGS (8)
  1. CLARITHROMYCIN. [Concomitant]
     Active Substance: CLARITHROMYCIN
  2. TENOFOVIR DISOPROXIL FUMARATE. [Suspect]
     Active Substance: TENOFOVIR DISOPROXIL FUMARATE
     Indication: HIV INFECTION
     Route: 065
  3. ETHAMBUTOL [Concomitant]
     Active Substance: ETHAMBUTOL HYDROCHLORIDE
  4. LAMIVUDINE. [Suspect]
     Active Substance: LAMIVUDINE
     Indication: HIV INFECTION
  5. ABACAVIR. [Suspect]
     Active Substance: ABACAVIR
     Indication: HIV INFECTION
  6. EMTRICITABINE [Suspect]
     Active Substance: EMTRICITABINE
     Indication: HIV INFECTION
     Route: 065
  7. LOPINAVIRUM + RITONAVIRUM [Suspect]
     Active Substance: LOPINAVIR\RITONAVIR
     Indication: HIV INFECTION
  8. METHYLPREDNISOLONE. [Concomitant]
     Active Substance: METHYLPREDNISOLONE
     Dosage: UNK

REACTIONS (12)
  - Renal tubular necrosis [Fatal]
  - Nephropathy [Unknown]
  - Enterococcal infection [Unknown]
  - Lung infection [Unknown]
  - Cytomegalovirus colitis [Unknown]
  - Immune reconstitution inflammatory syndrome [Fatal]
  - Abscess [Fatal]
  - Acute kidney injury [Recovered/Resolved]
  - Pericardial effusion [Unknown]
  - Tubulointerstitial nephritis [Unknown]
  - Mycobacterium avium complex infection [Unknown]
  - Multi-organ failure [Fatal]
